FAERS Safety Report 15981679 (Version 1)
Quarter: 2019Q1

REPORT INFORMATION
  Report Type: Spontaneous
  Country: US (occurrence: US)
  Receive Date: 20190219
  Receipt Date: 20190219
  Transmission Date: 20190418
  Serious: Yes (Other)
  Sender: FDA-Public Use
  Company Number: None

PATIENT
  Age: 50 Year
  Sex: Female
  Weight: 85.5 kg

DRUGS (1)
  1. DULOXETINE 30MG DELAYED RELEASE (GENERIC FOR CYMBALTA) [Suspect]
     Active Substance: DULOXETINE
     Indication: NEURALGIA
     Dosage: ?          QUANTITY:2 CAPSULE(S);?
     Route: 048
     Dates: start: 20190218

REACTIONS (4)
  - Product substitution issue [None]
  - Sleep terror [None]
  - Respiratory rate increased [None]
  - Palpitations [None]

NARRATIVE: CASE EVENT DATE: 20190219
